FAERS Safety Report 7421086-6 (Version None)
Quarter: 2011Q2

REPORT INFORMATION
  Report Type: 
  Country: None (occurrence: None)
  Receive Date: 20110418
  Receipt Date: 20110407
  Transmission Date: 20111010
  Serious: Yes (Hospitalization)
  Sender: FDA-Public Use
  Company Number: SE-ASTRAZENECA-2011SE19787

PATIENT
  Age: 47 Year
  Sex: Female

DRUGS (2)
  1. SUFENTA PRESERVATIVE FREE [Suspect]
     Indication: PRODUCT USED FOR UNKNOWN INDICATION
     Dosage: 2 ML
     Route: 037
     Dates: start: 20110209, end: 20110209
  2. MARCAINE [Suspect]
     Indication: PRODUCT USED FOR UNKNOWN INDICATION
     Dosage: 1.2 ML
     Route: 037
     Dates: start: 20110209, end: 20110209

REACTIONS (1)
  - PARESIS [None]
